FAERS Safety Report 7400296-8 (Version None)
Quarter: 2011Q2

REPORT INFORMATION
  Report Type: 
  Country: None (occurrence: None)
  Receive Date: 20110407
  Receipt Date: 20110331
  Transmission Date: 20111010
  Serious: Yes (Hospitalization)
  Sender: FDA-Public Use
  Company Number: BR-US-EMD SERONO, INC.-7051316

PATIENT
  Sex: Female

DRUGS (5)
  1. LEXAPRO [Concomitant]
  2. GYNERA [Concomitant]
  3. METICORTEN [Concomitant]
  4. REBIF [Suspect]
     Indication: RELAPSING-REMITTING MULTIPLE SCLEROSIS
     Dates: start: 20090506
  5. PARACETAMOL [Concomitant]

REACTIONS (2)
  - ASTHENIA [None]
  - HYPOAESTHESIA [None]
